FAERS Safety Report 12656017 (Version 1)
Quarter: 2016Q3

REPORT INFORMATION
  Report Type: Spontaneous
  Country: US (occurrence: US)
  Receive Date: 20160816
  Receipt Date: 20160816
  Transmission Date: 20161109
  Serious: No
  Sender: FDA-Public Use
  Company Number: US-ROCHE-1617353

PATIENT
  Age: 76 Year
  Sex: Female

DRUGS (4)
  1. CALCITRIOL. [Concomitant]
     Active Substance: CALCITRIOL
     Dosage: DOSE GIVEN 1 HOUR PRIOR TO MIRCERA
     Route: 048
     Dates: start: 20150321
  2. HEPARIN SODIUM. [Concomitant]
     Active Substance: HEPARIN SODIUM
     Dosage: 3000 UNITS?DOSE GIVEN 1 HOUR PRIOR TO MIRCERA
     Route: 065
     Dates: start: 20150321
  3. MIRCERA [Suspect]
     Active Substance: METHOXY POLYETHYLENE GLYCOL-EPOETIN BETA
     Indication: CHRONIC OBSTRUCTIVE PULMONARY DISEASE
     Dosage: LAST DOSE PRIOR TO SAE ON 21/JUN/2015
     Route: 065
     Dates: start: 20150621
  4. EPOGEN [Concomitant]
     Active Substance: ERYTHROPOIETIN
     Indication: ANAEMIA
     Dosage: DOSE- STARTED ON 3000 VARIED
     Route: 065
     Dates: start: 20141216, end: 20150716

REACTIONS (2)
  - Eye pruritus [Recovered/Resolved]
  - Throat tightness [Recovered/Resolved]

NARRATIVE: CASE EVENT DATE: 20150721
